FAERS Safety Report 5322650-0 (Version None)
Quarter: 2007Q2

REPORT INFORMATION
  Report Type: 
  Country: None (occurrence: None)
  Receive Date: 20070511
  Receipt Date: 20070508
  Transmission Date: 20071010
  Serious: Yes (Other)
  Sender: FDA-Public Use
  Company Number: GB-JNJFOC-20070502122

PATIENT
  Age: 44 Year
  Sex: Female

DRUGS (2)
  1. RISPERDAL [Suspect]
     Indication: PSYCHOTIC DISORDER
     Dosage: 5 DOSES SINCE THE WEEKEND
     Route: 048
  2. ETHYL TALAPRAM [Concomitant]

REACTIONS (1)
  - NEUTROPENIA [None]
